FAERS Safety Report 6263516-1 (Version None)
Quarter: 2009Q3

REPORT INFORMATION
  Report Type: 
  Country: None (occurrence: None)
  Receive Date: 20090710
  Receipt Date: 20090424
  Transmission Date: 20100115
  Serious: No
  Sender: FDA-Public Use
  Company Number: A0775937A

PATIENT
  Sex: Male

DRUGS (4)
  1. TYKERB [Suspect]
     Indication: DRUG USE FOR UNKNOWN INDICATION
     Route: 065
  2. OXACILLIN [Concomitant]
     Indication: STAPHYLOCOCCAL INFECTION
     Dosage: 4TAB PER DAY
     Route: 048
     Dates: start: 20090312
  3. ZOFRAN [Concomitant]
  4. ANTIEMETIC [Concomitant]

REACTIONS (5)
  - DEPRESSION [None]
  - DRY SKIN [None]
  - FATIGUE [None]
  - NAUSEA [None]
  - VOMITING [None]
